FAERS Safety Report 10090222 (Version 1)
Quarter: 2014Q2

REPORT INFORMATION
  Report Type: Spontaneous
  Country: US (occurrence: None)
  Receive Date: 20140409
  Receipt Date: 20140409
  Transmission Date: 20141212
  Serious: No
  Sender: FDA-Public Use
  Company Number: PHEH2014US004564

PATIENT
  Sex: Female

DRUGS (2)
  1. SIGNIFOR [Suspect]
     Indication: PITUITARY TUMOUR BENIGN
     Route: 058
     Dates: start: 20140115
  2. SIGNIFOR [Suspect]
     Indication: OFF LABEL USE
     Route: 058
     Dates: start: 20140115

REACTIONS (1)
  - Abdominal pain [None]
